FAERS Safety Report 11686802 (Version 3)
Quarter: 2015Q4

REPORT INFORMATION
  Report Type: Report from Study
  Country: CA (occurrence: CA)
  Receive Date: 20151030
  Receipt Date: 20151123
  Transmission Date: 20160304
  Serious: Yes (Hospitalization)
  Sender: FDA-Public Use
  Company Number: CA-TAKEDA-2015TUS014858

PATIENT
  Age: 37 Year
  Sex: Male
  Weight: 86 kg

DRUGS (3)
  1. VEDOLIZUMAB [Suspect]
     Active Substance: VEDOLIZUMAB
     Indication: CROHN^S DISEASE
     Dosage: 300 MG, Q4WEEKS
     Route: 042
     Dates: start: 20110627, end: 20150928
  2. COVERSYL PLUS                      /01421201/ [Concomitant]
     Active Substance: INDAPAMIDE\PERINDOPRIL ERBUMINE
     Dosage: UNK
  3. CIPRALEX [Concomitant]
     Active Substance: ESCITALOPRAM OXALATE
     Dosage: 10 MG, UNK

REACTIONS (1)
  - Infection [Recovered/Resolved]

NARRATIVE: CASE EVENT DATE: 20151026
